FAERS Safety Report 7527434-0 (Version None)
Quarter: 2011Q2

REPORT INFORMATION
  Report Type: 
  Country: None (occurrence: None)
  Receive Date: 20110607
  Receipt Date: 20110531
  Transmission Date: 20111010
  Serious: Yes (Other)
  Sender: FDA-Public Use
  Company Number: US-JNJFOC-20110601509

PATIENT
  Sex: Female

DRUGS (2)
  1. FENTANYL [Suspect]
     Indication: ARTHRALGIA
     Dosage: NDC: 0781-7241-55
     Route: 062
  2. FENTANYL [Suspect]
     Indication: BACK PAIN
     Dosage: NDC: 0781-7241-55
     Route: 062

REACTIONS (2)
  - DRUG INEFFECTIVE [None]
  - EYE OPERATION [None]
